FAERS Safety Report 12686921 (Version 1)
Quarter: 2016Q3

REPORT INFORMATION
  Report Type: Spontaneous
  Country: SE (occurrence: SE)
  Receive Date: 20160826
  Receipt Date: 20160826
  Transmission Date: 20161109
  Serious: Yes (Hospitalization, Other)
  Sender: FDA-Public Use
  Company Number: SE-ROCHE-1820361

PATIENT
  Age: 28 Year
  Sex: Male

DRUGS (6)
  1. PREDNISOLON [Concomitant]
     Active Substance: PREDNISOLONE
     Dosage: 3 TABLETS ONCE A DAY
     Route: 048
  2. OMEPRAZOL [Concomitant]
     Active Substance: OMEPRAZOLE
     Route: 048
     Dates: start: 2013
  3. MABTHERA [Suspect]
     Active Substance: RITUXIMAB
     Indication: RHEUMATOID ARTHRITIS
     Dosage: 1000MG EVERY 6TH MONTH
     Route: 042
     Dates: start: 20140530
  4. KALCIPOS-D FORTE [Concomitant]
     Route: 048
     Dates: start: 2013
  5. ENALAPRIL [Concomitant]
     Active Substance: ENALAPRIL
     Dosage: 2 TABLETS TWICE A DAY
     Route: 048
  6. ZANTAC [Concomitant]
     Active Substance: RANITIDINE HYDROCHLORIDE
     Dosage: 1 TABLET TWICE A DAY
     Route: 048

REACTIONS (3)
  - Pyrexia [Recovered/Resolved]
  - Myocarditis [Unknown]
  - Chest pain [Unknown]

NARRATIVE: CASE EVENT DATE: 20160614
